FAERS Safety Report 14690979 (Version 1)
Quarter: 2018Q1

REPORT INFORMATION
  Report Type: Not Available
  Country: US (occurrence: US)
  Receive Date: 20180328
  Receipt Date: 20180328
  Transmission Date: 20180509
  Serious: No
  Sender: FDA-Public Use
  Company Number: US-NEUROCRINE BIOSCIENCES INC.-2018NBI00230

PATIENT
  Sex: Female

DRUGS (10)
  1. AMLODIPINE [Concomitant]
     Active Substance: AMLODIPINE BESYLATE
  2. TRADJENTA [Concomitant]
     Active Substance: LINAGLIPTIN
  3. PAROXETINE. [Concomitant]
     Active Substance: PAROXETINE
  4. OMEPRAZOLE. [Concomitant]
     Active Substance: OMEPRAZOLE
  5. LITHIUM. [Concomitant]
     Active Substance: LITHIUM
  6. PYRIDOXINE [Concomitant]
     Active Substance: PYRIDOXINE
  7. INGREZZA [Suspect]
     Active Substance: VALBENAZINE
     Indication: TARDIVE DYSKINESIA
     Route: 048
     Dates: start: 20171130
  8. TOLTERODINE [Concomitant]
     Active Substance: TOLTERODINE
  9. ASPIRIN. [Concomitant]
     Active Substance: ASPIRIN
  10. TRIFLUOPERAZINE [Concomitant]
     Active Substance: TRIFLUOPERAZINE\TRIFLUOPERAZINE HYDROCHLORIDE

REACTIONS (1)
  - Somnolence [Unknown]
